FAERS Safety Report 16823172 (Version 1)
Quarter: 2019Q3

REPORT INFORMATION
  Report Type: Spontaneous
  Country: US (occurrence: US)
  Receive Date: 20190918
  Receipt Date: 20190918
  Transmission Date: 20191005
  Serious: Yes (Other)
  Sender: FDA-Public Use
  Company Number: US-MYLANLABS-2019M1087260

PATIENT
  Age: 40 Year
  Sex: Male
  Weight: 104.3 kg

DRUGS (1)
  1. FLUCONAZOLE. [Suspect]
     Active Substance: FLUCONAZOLE
     Indication: GUT FERMENTATION SYNDROME
     Dosage: SCHEDULED FOR 14 DAYS, BUT REPLACED WITH NYSTATIN ON DAY 10 FOLLOWING ABSENCE OF IMPROVEMENT
     Route: 048

REACTIONS (1)
  - Drug ineffective [Unknown]

NARRATIVE: CASE EVENT DATE: 201509
